FAERS Safety Report 9256160 (Version 1)
Quarter: 2013Q2

REPORT INFORMATION
  Report Type: Spontaneous
  Country: US (occurrence: US)
  Receive Date: 20130425
  Receipt Date: 20130425
  Transmission Date: 20140414
  Serious: No
  Sender: FDA-Public Use
  Company Number: US-AMGEN-USASP2012045385

PATIENT
  Sex: Female

DRUGS (3)
  1. NEULASTA [Suspect]
     Indication: CHEMOTHERAPY
     Dosage: UNK
  2. DOXORUBICIN [Concomitant]
     Dosage: UNK UNK, Q3WK
  3. CYCLOPHOSPHAMIDE [Concomitant]
     Dosage: UNK UNK, Q3WK

REACTIONS (1)
  - Palmar-plantar erythrodysaesthesia syndrome [Unknown]
